FAERS Safety Report 7206806-8 (Version None)
Quarter: 2010Q4

REPORT INFORMATION
  Report Type: 
  Country: None (occurrence: None)
  Receive Date: 20101217
  Receipt Date: 20101201
  Transmission Date: 20110411
  Serious: Yes (Death, Congenital Anomaly)
  Sender: FDA-Public Use
  Company Number: 1000017672

PATIENT
  Sex: Female

DRUGS (3)
  1. ESCITALOPRAM [Suspect]
     Dosage: TRANSPLACENTAL
     Route: 064
  2. DICLECTIN [Suspect]
  3. TAMIFLU [Suspect]
     Dosage: TRANSPLACENTAL
     Route: 064

REACTIONS (2)
  - LIMB REDUCTION DEFECT [None]
  - MATERNAL DRUGS AFFECTING FOETUS [None]
